FAERS Safety Report 20890921 (Version 3)
Quarter: 2022Q2

REPORT INFORMATION
  Report Type: Other
  Country: MX (occurrence: None)
  Receive Date: 20220530
  Receipt Date: 20220606
  Transmission Date: 20220721
  Serious: Yes (Other)
  Sender: FDA-Public Use
  Company Number: MX-ROCHE-2759008

PATIENT
  Age: 35 Year
  Sex: Female
  Weight: 45 kg

DRUGS (4)
  1. OCREVUS [Suspect]
     Active Substance: OCRELIZUMAB
     Indication: Relapsing-remitting multiple sclerosis
     Dosage: 300MG/10ML (30MG/ML)
     Route: 042
     Dates: start: 20190615
  2. ACETAMINOPHEN [Concomitant]
     Active Substance: ACETAMINOPHEN
     Indication: Premedication
     Dosage: ONE HOUR BEFORE THE INFUSION
     Route: 048
  3. METHYLPREDNISOLONE [Concomitant]
     Active Substance: METHYLPREDNISOLONE
     Indication: Premedication
     Dosage: 30 MINUTES BEFORE THE INFUSION
     Route: 042
  4. DIPHENHYDRAMINE [Concomitant]
     Active Substance: DIPHENHYDRAMINE
     Indication: Premedication
     Dosage: ONE HOUR BEFORE THE INFUSION
     Route: 042

REACTIONS (4)
  - Erysipelas [Recovered/Resolved]
  - Eye allergy [Recovered/Resolved]
  - Suspected counterfeit product [Unknown]
  - Buttock injury [Recovered/Resolved]

NARRATIVE: CASE EVENT DATE: 20200201
